FAERS Safety Report 5311463-1 (Version None)
Quarter: 2007Q2

REPORT INFORMATION
  Report Type: 
  Country: None (occurrence: None)
  Receive Date: 20070426
  Receipt Date: 20070426
  Transmission Date: 20071010
  Serious: Yes (Other)
  Sender: FDA-Public Use
  Company Number: None

PATIENT
  Age: 49 Year
  Sex: Male
  Weight: 96.6 kg

DRUGS (2)
  1. ZOCOR [Suspect]
  2. IBUPROFEN [Concomitant]

REACTIONS (1)
  - HEADACHE [None]
